FAERS Safety Report 6774758-0 (Version None)
Quarter: 2010Q2

REPORT INFORMATION
  Report Type: 
  Country: None (occurrence: None)
  Receive Date: 20100616
  Receipt Date: 20100616
  Transmission Date: 20101027
  Serious: Yes (Other)
  Sender: FDA-Public Use
  Company Number: None

PATIENT
  Age: 34 Year
  Sex: Male
  Weight: 63.5036 kg

DRUGS (2)
  1. TYLENOL PM EXTRA STRENGTH MC NEIL PPC [Suspect]
     Indication: BACK PAIN
     Dosage: 2 CAPSULES ONCE
     Dates: start: 20100610, end: 20100611
  2. TYLENOL PM EXTRA STRENGTH MC NEIL PPC [Suspect]
     Indication: MYALGIA
     Dosage: 2 CAPSULES ONCE
     Dates: start: 20100610, end: 20100611

REACTIONS (3)
  - DIARRHOEA [None]
  - INFLUENZA LIKE ILLNESS [None]
  - PRODUCT QUALITY ISSUE [None]
